FAERS Safety Report 17845809 (Version 1)
Quarter: 2020Q2

REPORT INFORMATION
  Report Type: Spontaneous
  Country: US (occurrence: US)
  Receive Date: 20200601
  Receipt Date: 20200601
  Transmission Date: 20200714
  Serious: No
  Sender: FDA-Public Use
  Company Number: None

PATIENT
  Age: 44 Year
  Sex: Female

DRUGS (1)
  1. TECFIDERA [Suspect]
     Active Substance: DIMETHYL FUMARATE
     Indication: MULTIPLE SCLEROSIS
     Route: 048
     Dates: start: 20200516

REACTIONS (4)
  - Ocular hyperaemia [None]
  - Lacrimation increased [None]
  - Ocular discomfort [None]
  - Eye irritation [None]

NARRATIVE: CASE EVENT DATE: 20200524
